FAERS Safety Report 5037096-2 (Version None)
Quarter: 2006Q2

REPORT INFORMATION
  Report Type: 
  Country: None (occurrence: None)
  Receive Date: 20060623
  Receipt Date: 20060613
  Transmission Date: 20061013
  Serious: Yes (Other)
  Sender: FDA-Public Use
  Company Number: 2006077129

PATIENT
  Age: 2 Year
  Sex: Male

DRUGS (6)
  1. ZOLOFT [Suspect]
     Indication: DEPRESSION
     Dosage: 50 MG (50 MG, 1 IN 1 D), PLACENTAL
     Route: 064
     Dates: start: 20030101, end: 20040707
  2. ZITHROMAX [Suspect]
     Indication: UPPER RESPIRATORY TRACT INFECTION
     Dosage: 500 MG (500 MG, 1 IN 1 D), PLACENTAL
     Route: 064
  3. NASONEX [Concomitant]
  4. FOLIC ACID [Concomitant]
  5. ALL OTHER THERAPEUTIC PRODUCTS [Concomitant]
  6. ACETAMINOPHEN [Concomitant]

REACTIONS (8)
  - CEREBRAL DISORDER [None]
  - DRUG EXPOSURE BEFORE PREGNANCY [None]
  - DRUG EXPOSURE DURING PREGNANCY [None]
  - PARESIS [None]
  - PREGNANCY [None]
  - PRESBYOPIA [None]
  - STRABISMUS [None]
  - UPPER RESPIRATORY TRACT INFECTION [None]
